FAERS Safety Report 7409451-4 (Version None)
Quarter: 2011Q1

REPORT INFORMATION
  Report Type: 
  Country: None (occurrence: None)
  Receive Date: 20110301
  Receipt Date: 20100810
  Transmission Date: 20110831
  Serious: Yes (Hospitalization)
  Sender: FDA-Public Use
  Company Number: RB-14096-2010

PATIENT
  Sex: Female
  Weight: 3.9917 kg

DRUGS (3)
  1. SUBOXONE [Suspect]
     Indication: DRUG DEPENDENCE
     Dosage: (8 MG BID TRANSPLACENTAL), (4 MG TRANSMAMMARY)
     Route: 064
     Dates: start: 20090601, end: 20091101
  2. SUBOXONE [Suspect]
     Indication: DRUG DEPENDENCE
     Dosage: (8 MG BID TRANSPLACENTAL), (4 MG TRANSMAMMARY)
     Route: 064
     Dates: start: 20100703
  3. SUBUTEX [Suspect]
     Indication: DRUG DEPENDENCE
     Dosage: (4 MG TRANSPLACENTAL)
     Route: 064
     Dates: start: 20091101, end: 20100702

REACTIONS (1)
  - JAUNDICE [None]
